FAERS Safety Report 6531275-0 (Version None)
Quarter: 2010Q1

REPORT INFORMATION
  Report Type: 
  Country: None (occurrence: None)
  Receive Date: 20100108
  Receipt Date: 20091229
  Transmission Date: 20100710
  Serious: Yes (Hospitalization, Other)
  Sender: FDA-Public Use
  Company Number: BE-NOVOPROD-302297

PATIENT
  Sex: Male
  Weight: 2.42 kg

DRUGS (7)
  1. LEVEMIR [Suspect]
     Indication: DRUG EXPOSURE DURING PREGNANCY
     Dosage: 60 IU, UNK
     Route: 064
  2. NOVORAPID [Suspect]
     Indication: DRUG EXPOSURE DURING PREGNANCY
     Dosage: 40 IU, UNK
  3. VITAMIN K TAB [Concomitant]
  4. VITAMIN A [Concomitant]
  5. ABTEI VITAMIN C [Concomitant]
  6. ABTEI VITAMIN E [Concomitant]
  7. FOLIC ACID [Concomitant]

REACTIONS (4)
  - DRUG EXPOSURE DURING PREGNANCY [None]
  - MATERNAL DRUGS AFFECTING FOETUS [None]
  - NEONATAL RESPIRATORY DISTRESS SYNDROME [None]
  - PREMATURE BABY [None]
